FAERS Safety Report 6061572-7 (Version None)
Quarter: 2009Q1

REPORT INFORMATION
  Report Type: 
  Country: None (occurrence: None)
  Receive Date: 20090130
  Receipt Date: 20090130
  Transmission Date: 20090719
  Serious: Yes (Life-Threatening, Hospitalization)
  Sender: FDA-Public Use
  Company Number: None

PATIENT
  Age: 35 Year
  Sex: Female
  Weight: 67.1324 kg

DRUGS (1)
  1. LUNESTA [Suspect]
     Indication: INSOMNIA
     Dosage: 3MG NIGHTLY PO
     Route: 048
     Dates: start: 20080101, end: 20081019

REACTIONS (14)
  - ABNORMAL SLEEP-RELATED EVENT [None]
  - ACCIDENT [None]
  - AMNESIA [None]
  - CONFUSIONAL STATE [None]
  - CONVULSION [None]
  - DISORIENTATION [None]
  - GAS POISONING [None]
  - HYPOGLYCAEMIA [None]
  - METABOLIC ACIDOSIS [None]
  - PAIN [None]
  - PHYSICAL ASSAULT [None]
  - RESPIRATORY ACIDOSIS [None]
  - SUICIDE ATTEMPT [None]
  - THROMBOSIS [None]
